FAERS Safety Report 7009831-5 (Version None)
Quarter: 2010Q3

REPORT INFORMATION
  Report Type: 
  Country: None (occurrence: None)
  Receive Date: 20100923
  Receipt Date: 20100914
  Transmission Date: 20110219
  Serious: Yes (Other)
  Sender: FDA-Public Use
  Company Number: PL-ROCHE-727771

PATIENT
  Age: 42 Year
  Sex: Female

DRUGS (2)
  1. PEG-INTRON [Suspect]
     Route: 065
  2. RIBAVIRIN [Suspect]
     Route: 065

REACTIONS (8)
  - AFFECTIVE DISORDER [None]
  - ARTHRALGIA [None]
  - CHOROIDAL HAEMORRHAGE [None]
  - CHOROIDAL NEOVASCULARISATION [None]
  - HEADACHE [None]
  - INSOMNIA [None]
  - OPTIC NEUROPATHY [None]
  - RETINOPATHY [None]
